FAERS Safety Report 12444327 (Version 1)
Quarter: 2016Q2

REPORT INFORMATION
  Report Type: Spontaneous
  Country: US (occurrence: US)
  Receive Date: 20160607
  Receipt Date: 20160607
  Transmission Date: 20160815
  Serious: No
  Sender: FDA-Public Use
  Company Number: US-SA-2016SA068976

PATIENT
  Age: 73 Year
  Sex: Female

DRUGS (5)
  1. ACTOS [Concomitant]
     Active Substance: PIOGLITAZONE HYDROCHLORIDE
  2. TETANUS VACCINE (FT) [Concomitant]
     Dosage: SHOT
  3. LYRICA [Concomitant]
     Active Substance: PREGABALIN
  4. TOUJEO [Suspect]
     Active Substance: INSULIN GLARGINE
     Indication: TYPE 2 DIABETES MELLITUS
     Dosage: DOSE:66 UNIT(S)
     Route: 065
     Dates: start: 201601, end: 20160417
  5. SOLOSTAR [Concomitant]
     Active Substance: DEVICE
     Indication: TYPE 2 DIABETES MELLITUS
     Dates: start: 201602

REACTIONS (3)
  - Tendonitis [Unknown]
  - Blood glucose increased [Recovering/Resolving]
  - Unevaluable event [Unknown]

NARRATIVE: CASE EVENT DATE: 201603
